FAERS Safety Report 17855447 (Version 2)
Quarter: 2020Q2

REPORT INFORMATION
  Report Type: Spontaneous
  Country: US (occurrence: US)
  Receive Date: 20200603
  Receipt Date: 20200615
  Transmission Date: 20200714
  Serious: No
  Sender: FDA-Public Use
  Company Number: US-GLAXOSMITHKLINE-US2020AMR091498

PATIENT
  Sex: Female

DRUGS (1)
  1. ALBUTEROL SULFATE. [Suspect]
     Active Substance: ALBUTEROL SULFATE
     Indication: BRONCHITIS
     Dosage: UNK
     Route: 065

REACTIONS (4)
  - Disease recurrence [Unknown]
  - Product storage error [Unknown]
  - Bronchitis [Unknown]
  - Wrong technique in product usage process [Unknown]
